FAERS Safety Report 4523106-5 (Version None)
Quarter: 2004Q4

REPORT INFORMATION
  Report Type: 
  Country: None (occurrence: None)
  Receive Date: 20041208
  Receipt Date: 20041201
  Transmission Date: 20050328
  Serious: Yes (Other)
  Sender: FDA-Public Use
  Company Number: 2004-12-0019

PATIENT
  Age: 55 Year
  Sex: Female

DRUGS (1)
  1. NASONEX [Suspect]
     Indication: SINUSITIS
     Dosage: 1PUFF/NARE * NASAL SPRAY
     Route: 045
     Dates: start: 20031001, end: 20040816

REACTIONS (1)
  - INTRAOCULAR PRESSURE INCREASED [None]
